FAERS Safety Report 25130605 (Version 2)
Quarter: 2025Q2

REPORT INFORMATION
  Report Type: Spontaneous
  Country: LT (occurrence: LT)
  Receive Date: 20250327
  Receipt Date: 20250401
  Transmission Date: 20250717
  Serious: Yes (Death, Other)
  Sender: SANDOZ
  Company Number: LT-ROCHE-10000224714

PATIENT
  Age: 50 Year
  Sex: Female
  Weight: 56 kg

DRUGS (11)
  1. BEVACIZUMAB [Suspect]
     Active Substance: BEVACIZUMAB
     Indication: Ovarian cancer
     Route: 065
     Dates: start: 202110, end: 202204
  2. BEVACIZUMAB [Suspect]
     Active Substance: BEVACIZUMAB
     Indication: Ovarian cancer
     Route: 065
  3. BEVACIZUMAB [Suspect]
     Active Substance: BEVACIZUMAB
     Indication: Hyperprolactinaemia
     Route: 065
     Dates: start: 202105, end: 202106
  4. CARBOPLATIN [Suspect]
     Active Substance: CARBOPLATIN
     Indication: Ovarian cancer
     Route: 065
  5. CARBOPLATIN [Suspect]
     Active Substance: CARBOPLATIN
     Indication: Hyperprolactinaemia
  6. PACLITAXEL [Suspect]
     Active Substance: PACLITAXEL
     Indication: Hyperprolactinaemia
     Route: 065
     Dates: start: 202111, end: 202204
  7. PACLITAXEL [Suspect]
     Active Substance: PACLITAXEL
     Indication: Ovarian cancer
     Route: 065
  8. PACLITAXEL [Suspect]
     Active Substance: PACLITAXEL
     Indication: Ovarian cancer
     Route: 065
     Dates: start: 202009, end: 202104
  9. PACLITAXEL [Suspect]
     Active Substance: PACLITAXEL
     Route: 065
     Dates: start: 202105, end: 202106
  10. TOPOTECAN [Suspect]
     Active Substance: TOPOTECAN HYDROCHLORIDE
     Indication: Ovarian cancer
     Route: 065
  11. TOPOTECAN [Suspect]
     Active Substance: TOPOTECAN HYDROCHLORIDE
     Indication: Hyperprolactinaemia

REACTIONS (9)
  - Ovarian cancer [Fatal]
  - Disease progression [Fatal]
  - Ileus [Unknown]
  - Hyperprolactinaemia [Unknown]
  - Breast pain [Unknown]
  - General physical health deterioration [Unknown]
  - Oral fungal infection [Unknown]
  - Vomiting [Unknown]
  - Abdominal pain [Unknown]

NARRATIVE: CASE EVENT DATE: 20210101
